FAERS Safety Report 16376574 (Version 1)
Quarter: 2019Q2

REPORT INFORMATION
  Report Type: Spontaneous
  Country: US (occurrence: US)
  Receive Date: 20190531
  Receipt Date: 20190531
  Transmission Date: 20190711
  Serious: No
  Sender: FDA-Public Use
  Company Number: US-TEVA-2019-US-1058800

PATIENT
  Sex: Female

DRUGS (1)
  1. AMILORIDE HYDROCHLORIDE AND HYDROCHLOROTHIAZIDE TABLET 5/50MG [Suspect]
     Active Substance: AMILORIDE HYDROCHLORIDE\HYDROCHLOROTHIAZIDE
     Dosage: AMILORIDE HYDROCHLORIDE 5 MG AND HYDROCHLOROTHIAZIDE TABLET 50MG
     Route: 065

REACTIONS (3)
  - Urticaria [Unknown]
  - Throat tightness [Unknown]
  - Lacrimation increased [Unknown]
